FAERS Safety Report 19932641 (Version 1)
Quarter: 2021Q4

REPORT INFORMATION
  Report Type: Spontaneous
  Country: US (occurrence: US)
  Receive Date: 20211008
  Receipt Date: 20211008
  Transmission Date: 20220303
  Serious: Yes (Hospitalization, Other)
  Sender: FDA-Public Use
  Company Number: US-HIKMA PHARMACEUTICALS USA INC.-US-H14001-21-04253

PATIENT
  Sex: Male

DRUGS (2)
  1. RIFAMPIN [Suspect]
     Active Substance: RIFAMPIN
     Indication: Product used for unknown indication
     Dosage: 600 MG ONCE DAILY IN THE EVENING
     Route: 065
  2. CORTEF [Suspect]
     Active Substance: HYDROCORTISONE
     Indication: Product used for unknown indication
     Dosage: 30MG IN THE MORNING, 10MG IN THE AFTERNOON, AND 10MG IN THE EVENING
     Route: 065

REACTIONS (6)
  - Pyrexia [Unknown]
  - Tachycardia [Unknown]
  - Adverse event [Unknown]
  - Surgery [Unknown]
  - Pneumonia [Unknown]
  - Drug interaction [Unknown]
